FAERS Safety Report 6381026-8 (Version None)
Quarter: 2009Q3

REPORT INFORMATION
  Report Type: 
  Country: None (occurrence: None)
  Receive Date: 20090929
  Receipt Date: 20090918
  Transmission Date: 20100115
  Serious: Yes (Other)
  Sender: FDA-Public Use
  Company Number: SE-MERCK-0909SWE00040

PATIENT
  Age: 56 Year
  Sex: Male

DRUGS (7)
  1. ZOCOR [Suspect]
     Indication: LOW DENSITY LIPOPROTEIN INCREASED
     Route: 048
  2. ZOCOR [Suspect]
     Route: 048
  3. AZITHROMYCIN [Suspect]
     Route: 065
  4. TEMAZEPAM [Concomitant]
     Route: 065
  5. NEFAZODONE HYDROCHLORIDE [Suspect]
     Route: 065
  6. ISOMETHEPTENE HYDROCHLORIDE [Concomitant]
     Route: 065
  7. FEXOFENADINE HYDROCHLORIDE [Concomitant]
     Route: 065

REACTIONS (2)
  - DRUG INTERACTION [None]
  - RHABDOMYOLYSIS [None]
